FAERS Safety Report 25214923 (Version 1)
Quarter: 2025Q2

REPORT INFORMATION
  Report Type: Spontaneous
  Country: US (occurrence: None)
  Receive Date: 20250418
  Receipt Date: 20250418
  Transmission Date: 20250716
  Serious: Yes (Other)
  Sender: FDA-CTU
  Company Number: None

PATIENT
  Age: 54 Year
  Sex: Female
  Weight: 119.3 kg

DRUGS (2)
  1. APHEXDA [Suspect]
     Active Substance: MOTIXAFORTIDE ACETATE
     Indication: Haematopoietic stem cell mobilisation
     Route: 058
     Dates: start: 20250217, end: 20250219
  2. NEULASTA [Concomitant]
     Active Substance: PEGFILGRASTIM
     Dates: start: 20250214, end: 20250214

REACTIONS (2)
  - Skin ulcer [None]
  - Impaired healing [None]

NARRATIVE: CASE EVENT DATE: 20250217
